FAERS Safety Report 5039294-0 (Version None)
Quarter: 2006Q2

REPORT INFORMATION
  Report Type: 
  Country: None (occurrence: None)
  Receive Date: 20060623
  Receipt Date: 20060613
  Transmission Date: 20061013
  Serious: Yes (Hospitalization)
  Sender: FDA-Public Use
  Company Number: 2006BI007649

PATIENT
  Age: 44 Year
  Sex: Female
  Weight: 58.9676 kg

DRUGS (4)
  1. AVONEX [Suspect]
     Indication: MULTIPLE SCLEROSIS
     Dosage: 30 UG;QW;IM
     Route: 030
     Dates: start: 20010601
  2. PROPRANOLOL [Concomitant]
  3. DETROL [Concomitant]
  4. AMANTADINE HCL [Concomitant]

REACTIONS (2)
  - BACK DISORDER [None]
  - INTERVERTEBRAL DISC PROTRUSION [None]
